FAERS Safety Report 10663700 (Version 1)
Quarter: 2014Q4

REPORT INFORMATION
  Report Type: Report from Study
  Country: CA (occurrence: CA)
  Receive Date: 20141219
  Receipt Date: 20141219
  Transmission Date: 20150529
  Serious: Yes (Other)
  Sender: FDA-Public Use
  Company Number: CA-AMGEN-CANSL2014097360

PATIENT
  Age: 62 Year
  Sex: Female

DRUGS (2)
  1. VITAMIN C [Concomitant]
     Active Substance: ASCORBIC ACID
     Dosage: UNK
  2. PROLIA [Suspect]
     Active Substance: DENOSUMAB
     Indication: BONE DENSITY DECREASED
     Dosage: 60 MG, Q6MO
     Route: 058
     Dates: start: 20120716

REACTIONS (4)
  - Sjogren^s syndrome [Unknown]
  - Arthritis [Recovered/Resolved]
  - Raynaud^s phenomenon [Unknown]
  - Scleroderma [Unknown]

NARRATIVE: CASE EVENT DATE: 2012
